FAERS Safety Report 9794328 (Version 3)
Quarter: 2014Q1

REPORT INFORMATION
  Report Type: Report from Study
  Country: UY (occurrence: UY)
  Receive Date: 20140102
  Receipt Date: 20140130
  Transmission Date: 20141002
  Serious: Yes (Death, Life-Threatening, Hospitalization, Other)
  Sender: FDA-Public Use
  Company Number: UY-ABBVIE-13P-168-1181638-00

PATIENT
  Sex: Female
  Weight: 68 kg

DRUGS (3)
  1. HUMIRA [Suspect]
     Indication: RHEUMATOID ARTHRITIS
     Route: 058
     Dates: start: 20101224, end: 20131212
  2. VIT D3 [Concomitant]
     Indication: OSTEOPENIA
     Route: 048
     Dates: start: 2010
  3. OMEPRAZOLE [Concomitant]
     Indication: GASTRITIS
     Dates: start: 2009

REACTIONS (9)
  - Respiratory failure [Fatal]
  - Leukopenia [Fatal]
  - Pneumonia pneumococcal [Fatal]
  - Pneumonia [Recovered/Resolved with Sequelae]
  - Immunodeficiency [Not Recovered/Not Resolved]
  - Pneumonia [Fatal]
  - Fatigue [Not Recovered/Not Resolved]
  - Pyrexia [Not Recovered/Not Resolved]
  - Dyspnoea [Not Recovered/Not Resolved]
